FAERS Safety Report 17084640 (Version 1)
Quarter: 2019Q4

REPORT INFORMATION
  Report Type: Spontaneous
  Country: US (occurrence: US)
  Receive Date: 20191127
  Receipt Date: 20191127
  Transmission Date: 20200122
  Serious: Yes (Death, Hospitalization)
  Sender: FDA-Public Use
  Company Number: US-TEVA-2019-US-1142735

PATIENT
  Age: 32 Year
  Sex: Male
  Weight: 72 kg

DRUGS (16)
  1. VORICONAZOLE. [Interacting]
     Active Substance: VORICONAZOLE
     Dosage: 19.5 MG/KG DAILY;
     Route: 042
  2. ISONIAZID. [Concomitant]
     Active Substance: ISONIAZID
     Indication: TUBERCULOSIS
     Route: 048
  3. RIFAMPIN. [Interacting]
     Active Substance: RIFAMPIN
     Indication: TUBERCULOSIS
     Route: 048
  4. VORICONAZOLE. [Interacting]
     Active Substance: VORICONAZOLE
     Indication: CENTRAL NERVOUS SYSTEM FUNGAL INFECTION
     Dosage: 17 MG/KG DAILY;
     Route: 042
  5. VORICONAZOLE. [Interacting]
     Active Substance: VORICONAZOLE
     Indication: ASPERGILLUS INFECTION
     Dosage: 20 MG/KG DAILY;
     Route: 042
  6. VORICONAZOLE. [Interacting]
     Active Substance: VORICONAZOLE
     Dosage: 25.5 MG/KG DAILY;
     Route: 042
  7. MICAFUNGIN. [Suspect]
     Active Substance: MICAFUNGIN SODIUM
     Indication: FUNGAL INFECTION
     Dosage: 150 MILLIGRAM DAILY;
     Route: 042
  8. VORICONAZOLE. [Interacting]
     Active Substance: VORICONAZOLE
     Dosage: 11 MG/KG DAILY;
     Route: 042
  9. AMBISOME [Suspect]
     Active Substance: AMPHOTERICIN B
     Indication: MENINGITIS FUNGAL
     Route: 042
  10. ISAVUCONAZONIUM SULFATE [Concomitant]
     Active Substance: ISAVUCONAZONIUM SULFATE
     Route: 042
  11. PREDNISONE. [Suspect]
     Active Substance: PREDNISONE
     Indication: DERMATOMYOSITIS
     Dosage: 30-60 MG DAILY FOR MORE THAN A YEAR
     Route: 065
  12. VORICONAZOLE. [Interacting]
     Active Substance: VORICONAZOLE
     Dosage: 22.5 MG/KG DAILY;
     Route: 042
  13. PYRAZINAMIDE. [Concomitant]
     Active Substance: PYRAZINAMIDE
     Indication: TUBERCULOSIS
     Route: 048
  14. ETHAMBUTOL [Concomitant]
     Active Substance: ETHAMBUTOL HYDROCHLORIDE
     Indication: TUBERCULOSIS
     Route: 048
  15. ISAVUCONAZONIUM SULFATE [Concomitant]
     Active Substance: ISAVUCONAZONIUM SULFATE
     Indication: FUNGAL INFECTION
     Dosage: 1116 MILLIGRAM DAILY; FOR 6 DOSES; LOADING DOSE
     Route: 042
  16. AMBISOME [Suspect]
     Active Substance: AMPHOTERICIN B
     Dosage: 7.5 MG/KG DAILY;
     Route: 042

REACTIONS (5)
  - Drug ineffective [Unknown]
  - Central nervous system fungal infection [Fatal]
  - Drug level below therapeutic [Unknown]
  - Aspergillus infection [Fatal]
  - Drug interaction [Unknown]
